FAERS Safety Report 7751849-9 (Version None)
Quarter: 2011Q3

REPORT INFORMATION
  Report Type: 
  Country: None (occurrence: None)
  Receive Date: 20110914
  Receipt Date: 20110914
  Transmission Date: 20111222
  Serious: Yes (Hospitalization)
  Sender: FDA-Public Use
  Company Number: None

PATIENT
  Age: 62 Year
  Sex: Male
  Weight: 98.7 kg

DRUGS (2)
  1. IBUPROFEN [Suspect]
     Indication: PAIN
     Dosage: 1200 MG BID PO
     Route: 048
     Dates: start: 20110210, end: 20110608
  2. WARFARIN SODIUM [Suspect]
     Indication: PULMONARY EMBOLISM
     Dates: start: 20100216

REACTIONS (7)
  - ANAEMIA [None]
  - DYSPNOEA [None]
  - CHEST PAIN [None]
  - FAECES DISCOLOURED [None]
  - GASTROINTESTINAL ULCER [None]
  - OCCULT BLOOD POSITIVE [None]
  - GASTRIC HAEMORRHAGE [None]
